FAERS Safety Report 4819220-7 (Version None)
Quarter: 2005Q4

REPORT INFORMATION
  Report Type: 
  Country: None (occurrence: None)
  Receive Date: 20051103
  Receipt Date: 20051027
  Transmission Date: 20060501
  Serious: Yes (Death)
  Sender: FDA-Public Use
  Company Number: GB-GLAXOSMITHKLINE-B0399097A

PATIENT
  Age: 74 Year
  Sex: Male

DRUGS (13)
  1. SALBUTAMOL [Suspect]
     Route: 055
  2. SERETIDE [Suspect]
     Dosage: 2PUFF TWICE PER DAY
     Route: 055
  3. SUMATRIPTAN SUCCINATE [Suspect]
     Route: 045
  4. SPIRIVA [Suspect]
     Dosage: 18MCG PER DAY
     Route: 055
  5. AMITRIPTYLINE HCL [Suspect]
     Dosage: 25MG AT NIGHT
     Route: 048
  6. CLARITHROMYCIN [Suspect]
     Dosage: 250MG TWICE PER DAY
     Route: 048
  7. MENTHOL [Suspect]
     Route: 055
  8. OXYGEN [Suspect]
     Route: 055
  9. ACETAMINOPHEN [Suspect]
     Dosage: 1000MG FOUR TIMES PER DAY
     Route: 048
  10. PREDNISOLONE [Suspect]
     Dosage: 5MG PER DAY
     Route: 048
  11. VERAPAMIL [Suspect]
     Dosage: 120MG THREE TIMES PER DAY
     Route: 048
  12. EUCALYPTUS [Suspect]
     Route: 055
  13. SUMATRIPTAN SUCCINATE [Suspect]

REACTIONS (2)
  - CHRONIC OBSTRUCTIVE PULMONARY DISEASE [None]
  - LOWER RESPIRATORY TRACT INFECTION [None]
